FAERS Safety Report 9925184 (Version 1)
Quarter: 2014Q1

REPORT INFORMATION
  Report Type: Spontaneous
  Country: US (occurrence: None)
  Receive Date: 20140224
  Receipt Date: 20140224
  Transmission Date: 20141002
  Serious: Yes (Other)
  Sender: FDA-Public Use
  Company Number: SYM-2014-17397

PATIENT
  Age: 67 Year
  Sex: Male
  Weight: 90.72 kg

DRUGS (1)
  1. ELIDEL [Suspect]
     Indication: BLEPHARITIS
     Route: 061
     Dates: start: 20140205, end: 20140205

REACTIONS (2)
  - Eye disorder [None]
  - Eye irritation [None]
